FAERS Safety Report 7069950-4 (Version None)
Quarter: 2010Q4

REPORT INFORMATION
  Report Type: 
  Country: None (occurrence: None)
  Receive Date: 20101028
  Receipt Date: 20100726
  Transmission Date: 20110411
  Serious: No
  Sender: FDA-Public Use
  Company Number: US-WYE-H16683110

PATIENT
  Sex: Female
  Weight: 59.02 kg

DRUGS (4)
  1. EFFEXOR [Suspect]
     Indication: DEPRESSION
     Dates: start: 20000101
  2. EFFEXOR [Suspect]
     Indication: ANXIETY
  3. VENLAFAXINE HYDROCHLORIDE [Suspect]
     Indication: DEPRESSION
  4. VENLAFAXINE HYDROCHLORIDE [Suspect]
     Indication: ANXIETY

REACTIONS (2)
  - ANXIETY [None]
  - FEELING ABNORMAL [None]
